APPROVED DRUG PRODUCT: E.E.S. 400
Active Ingredient: ERYTHROMYCIN ETHYLSUCCINATE
Strength: EQ 400MG BASE
Dosage Form/Route: TABLET;ORAL
Application: A061905 | Product #001
Applicant: PHARMOBEDIENT CONSULTING LLC
Approved: Approved Prior to Jan 1, 1982 | RLD: No | RS: No | Type: DISCN